FAERS Safety Report 18126251 (Version 1)
Quarter: 2020Q3

REPORT INFORMATION
  Report Type: Spontaneous
  Country: GB (occurrence: GB)
  Receive Date: 20200808
  Receipt Date: 20200808
  Transmission Date: 20201103
  Serious: Yes (Other)
  Sender: FDA-Public Use
  Company Number: GB-AUROBINDO-AUR-APL-2020-038035

PATIENT
  Age: 21 Year
  Sex: Female
  Weight: 120 kg

DRUGS (2)
  1. SERTRALINE [Concomitant]
     Active Substance: SERTRALINE HYDROCHLORIDE
     Indication: PRODUCT USED FOR UNKNOWN INDICATION
     Dosage: UNK
     Route: 065
  2. TOPIRAMATE. [Suspect]
     Active Substance: TOPIRAMATE
     Indication: NEURALGIA
     Dosage: 50 MILLIGRAM, ONCE A DAY
     Route: 048
     Dates: start: 20200628, end: 20200715

REACTIONS (3)
  - Thirst [Recovered/Resolved]
  - Electrolyte imbalance [Unknown]
  - Maternal exposure during pregnancy [Unknown]
